FAERS Safety Report 5238409-9 (Version None)
Quarter: 2007Q1

REPORT INFORMATION
  Report Type: 
  Country: None (occurrence: None)
  Receive Date: 20070215
  Receipt Date: 20070205
  Transmission Date: 20070707
  Serious: Yes (Other)
  Sender: FDA-Public Use
  Company Number: FR-ROCHE-481819

PATIENT
  Age: 46 Year
  Sex: Male

DRUGS (2)
  1. PEGASYS [Suspect]
     Indication: HEPATITIS C
     Route: 065
     Dates: end: 20060315
  2. RIBAVIRIN [Suspect]
     Indication: HEPATITIS C
     Dosage: MEDICATION REPORTED AS RIBAVIRINE.
     Route: 065
     Dates: end: 20060315

REACTIONS (1)
  - TENDONITIS [None]
